FAERS Safety Report 13424197 (Version 6)
Quarter: 2017Q4

REPORT INFORMATION
  Report Type: Spontaneous
  Country: JP (occurrence: JP)
  Receive Date: 20170410
  Receipt Date: 20171114
  Transmission Date: 20180320
  Serious: Yes (Death, Other)
  Sender: FDA-Public Use
  Company Number: JP-009507513-1704JPN000692J

PATIENT
  Age: 65 Year
  Sex: Male
  Weight: 79 kg

DRUGS (6)
  1. PRECEDEX [Concomitant]
     Active Substance: DEXMEDETOMIDINE HYDROCHLORIDE
     Indication: SQUAMOUS CELL CARCINOMA OF LUNG
     Dosage: 200 MICROGRAM, QD
     Route: 051
     Dates: start: 20170404, end: 20170404
  2. ELNEOPA NO.1 [Concomitant]
     Indication: SQUAMOUS CELL CARCINOMA OF LUNG
     Dosage: 1000 ML, QD
     Route: 051
     Dates: start: 20170404, end: 20170404
  3. OMEPRAZOLE. [Concomitant]
     Active Substance: OMEPRAZOLE
     Indication: SQUAMOUS CELL CARCINOMA OF LUNG
     Dosage: 20 MG, QD
     Route: 051
     Dates: start: 20170404, end: 20170404
  4. KEYTRUDA [Suspect]
     Active Substance: PEMBROLIZUMAB
     Indication: SQUAMOUS CELL CARCINOMA OF LUNG
     Dosage: 200 MG, Q3W
     Route: 041
     Dates: start: 20170403
  5. GILOTRIF [Concomitant]
     Active Substance: AFATINIB
     Indication: SQUAMOUS CELL CARCINOMA OF LUNG
     Dosage: 30 MG, QD
     Route: 048
     Dates: start: 20160809, end: 20170327
  6. NOREPINEPHRINE. [Concomitant]
     Active Substance: NOREPINEPHRINE
     Indication: SQUAMOUS CELL CARCINOMA OF LUNG
     Dosage: 1.0 MG, QD
     Route: 051
     Dates: start: 20170405, end: 20170405

REACTIONS (1)
  - Malignant neoplasm progression [Fatal]

NARRATIVE: CASE EVENT DATE: 20170405
